FAERS Safety Report 8949533 (Version 2)
Quarter: 2013Q1

REPORT INFORMATION
  Report Type: Report from Study
  Country: US (occurrence: US)
  Receive Date: 20121206
  Receipt Date: 20130104
  Transmission Date: 20140127
  Serious: Yes (Hospitalization)
  Sender: FDA-Public Use
  Company Number: US-MPIJNJ-2012-08513

PATIENT
  Age: 56 Year
  Sex: Male
  Weight: 64.85 kg

DRUGS (6)
  1. VELCADE [Suspect]
     Indication: RENAL CELL CARCINOMA
     Dosage: 1.8 MG, CYCLIC
     Route: 042
     Dates: start: 20120905, end: 20121114
  2. BEVACIZUMAB [Suspect]
     Indication: RENAL CELL CARCINOMA
     Dosage: 15 MG, CYCLIC
     Route: 042
     Dates: start: 20120905, end: 20121107
  3. ATENOLOL [Concomitant]
     Indication: PRODUCT USED FOR UNKNOWN INDICATION
     Dosage: 25 MG, QD
     Route: 048
  4. NORCO [Concomitant]
     Indication: PRODUCT USED FOR UNKNOWN INDICATION
  5. MULTIVITAMIN                       /00831701/ [Concomitant]
     Indication: PRODUCT USED FOR UNKNOWN INDICATION
  6. COLACE [Concomitant]
     Indication: PRODUCT USED FOR UNKNOWN INDICATION
     Dosage: 100 MG, BID
     Route: 048

REACTIONS (1)
  - Ear haemorrhage [Not Recovered/Not Resolved]
